FAERS Safety Report 8001842-6 (Version None)
Quarter: 2011Q4

REPORT INFORMATION
  Report Type: 
  Country: None (occurrence: None)
  Receive Date: 20111220
  Receipt Date: 20111024
  Transmission Date: 20120403
  Serious: Yes (Death, Hospitalization, Other)
  Sender: FDA-Public Use
  Company Number: 2010000444

PATIENT
  Age: 53 Year
  Sex: Female
  Weight: 84 kg

DRUGS (18)
  1. ERLOTINIB HYDROCHLORIDE [Suspect]
  2. AVASTIN [Suspect]
  3. AVASTIN [Suspect]
     Indication: NON-SMALL CELL LUNG CANCER
     Dosage: 15 MG/KG 1 IN 21 DAYS, Q3W, IV NOS
     Route: 042
     Dates: start: 20080723, end: 20091224
  4. AVASTIN [Suspect]
     Indication: NON-SMALL CELL LUNG CANCER
     Dosage: 15 MG/KG 1 IN 21 DAYS, Q3W, IV NOS
     Route: 042
     Dates: start: 20090116, end: 20110418
  5. MINOCYCLINE HCL [Concomitant]
  6. 4 LIFE TRANSFER FACTOR (TRANSFER FACTOR) [Concomitant]
  7. LORTAB [Concomitant]
  8. PHENERGAN HCL [Concomitant]
  9. ERLOTINIB HYDROCHLORIDE [Suspect]
     Indication: NON-SMALL CELL LUNG CANCER
     Dosage: 25;50;15  MG, UID/QD, ORAL
     Route: 048
     Dates: start: 20080723
  10. ERLOTINIB HYDROCHLORIDE [Suspect]
     Indication: NON-SMALL CELL LUNG CANCER
     Dosage: 25;50;15  MG, UID/QD, ORAL
     Route: 048
     Dates: start: 20110418, end: 20110425
  11. ERLOTINIB HYDROCHLORIDE [Suspect]
     Indication: NON-SMALL CELL LUNG CANCER
     Dosage: 25;50;15  MG, UID/QD, ORAL
     Route: 048
     Dates: start: 20090116, end: 20110923
  12. CIPRO [Concomitant]
  13. LOVENOX [Concomitant]
  14. ZOFRAN [Concomitant]
  15. LISINOPRIL [Concomitant]
  16. TERA PLUS VITAMINS (MULTIVITAMINS WITH MINERALS) [Concomitant]
  17. FENTANYL [Concomitant]
  18. LEVAQUIN [Concomitant]

REACTIONS (24)
  - HYPOTENSION [None]
  - FUNGAL SEPSIS [None]
  - BLOOD CULTURE POSITIVE [None]
  - TRICUSPID VALVE INCOMPETENCE [None]
  - GASTROOESOPHAGEAL REFLUX DISEASE [None]
  - RASH [None]
  - PLATELET COUNT DECREASED [None]
  - NEOPLASM MALIGNANT [None]
  - RENAL FAILURE ACUTE [None]
  - SYNCOPE [None]
  - PANIC ATTACK [None]
  - PERICARDIAL EFFUSION [None]
  - TACHYCARDIA [None]
  - LUNG INFECTION [None]
  - ANGINA PECTORIS [None]
  - PERIPHERAL COLDNESS [None]
  - RESPIRATORY DISORDER [None]
  - PULMONARY HYPERTENSION [None]
  - CIRCULATORY COLLAPSE [None]
  - ASPIRATION [None]
  - INCORRECT DOSE ADMINISTERED [None]
  - BRONCHITIS VIRAL [None]
  - CANDIDIASIS [None]
  - DEHYDRATION [None]
